FAERS Safety Report 6576044-0 (Version None)
Quarter: 2010Q1

REPORT INFORMATION
  Report Type: 
  Country: None (occurrence: None)
  Receive Date: 20100209
  Receipt Date: 20100128
  Transmission Date: 20100710
  Serious: Yes (Hospitalization, Other)
  Sender: FDA-Public Use
  Company Number: PHEH2010US01081

PATIENT
  Sex: Male

DRUGS (4)
  1. EXJADE [Suspect]
     Indication: TRANSFUSION
     Dosage: 250 MG, QD
     Route: 048
  2. CARDIAZEM [Concomitant]
  3. FEOSOL [Concomitant]
  4. SIMVASTATIN [Concomitant]

REACTIONS (3)
  - ANAEMIA [None]
  - BLOOD CREATININE DECREASED [None]
  - HAEMOGLOBIN DECREASED [None]
